FAERS Safety Report 19855377 (Version 1)
Quarter: 2021Q3

REPORT INFORMATION
  Report Type: Spontaneous
  Country: US (occurrence: US)
  Receive Date: 20210918
  Receipt Date: 20210918
  Transmission Date: 20211014
  Serious: No
  Sender: FDA-Public Use
  Company Number: None

PATIENT
  Age: 29 Year
  Sex: Male
  Weight: 74.84 kg

DRUGS (1)
  1. FLUOXETINE [Suspect]
     Active Substance: FLUOXETINE HYDROCHLORIDE

REACTIONS (9)
  - Panic reaction [None]
  - Adverse drug reaction [None]
  - Morbid thoughts [None]
  - Anxiety [None]
  - Heart rate increased [None]
  - Stress [None]
  - Fear [None]
  - Akathisia [None]
  - Hypertension [None]

NARRATIVE: CASE EVENT DATE: 20210904
